FAERS Safety Report 4713642-0 (Version None)
Quarter: 2005Q3

REPORT INFORMATION
  Report Type: 
  Country: None (occurrence: None)
  Receive Date: 20050712
  Receipt Date: 20050622
  Transmission Date: 20060218
  Serious: Yes (Life-Threatening)
  Sender: FDA-Public Use
  Company Number: 214969

PATIENT
  Sex: Male

DRUGS (24)
  1. MABTHERA(RITUXIMAB) CONC FOR SOLUTION FOR INFUSION [Suspect]
     Indication: LYMPHOMA
     Dosage: 625 MG, INTRAVENOUS
     Route: 042
     Dates: start: 20050322, end: 20050414
  2. MABTHERA(RITUXIMAB) CONC FOR SOLUTION FOR INFUSION [Suspect]
     Indication: LYMPHOMA
     Dosage: 625 MG, INTRAVENOUS
     Route: 042
     Dates: start: 20050421
  3. ALDESLEUKIN (ALDESLEUKIN) [Suspect]
     Indication: LYMPHOMA
     Dosage: SEE IMAGE
     Route: 058
     Dates: start: 20050329, end: 20050414
  4. ALDESLEUKIN (ALDESLEUKIN) [Suspect]
     Indication: LYMPHOMA
     Dosage: SEE IMAGE
     Route: 058
     Dates: start: 20050421
  5. CLARITINE (LORATADINE) [Concomitant]
  6. ACETAMINOPHEN [Concomitant]
  7. VITAMIN B12 [Concomitant]
  8. ALLOPURINOL [Concomitant]
  9. FOLIC ACID [Concomitant]
  10. ASCORBIC ACID (ASCORBIC ACID0 [Concomitant]
  11. DIMEDROL (DIPHENHYDRAMINE NOS) [Concomitant]
  12. 0.9% SODIUM CHLORIDE (SOLDIUM CHLORIDE) [Concomitant]
  13. 5% GLUCOSE SOLUTION (GLUCOSE) [Concomitant]
  14. DEXAMETHASONE [Concomitant]
  15. RHEOPOLYGLUCIN (GLUCOSE POLYMERS) [Concomitant]
  16. DIOTER [Concomitant]
  17. ESSENTIALE [Concomitant]
  18. THIATRIAZOLIN [Concomitant]
  19. DIPYRONE INJ [Concomitant]
  20. BIOFERMIN (LACTOBACILLUS ACIDOPHILUS) [Concomitant]
  21. DYPHYLLINE (DYPHYLLINE) [Concomitant]
  22. PENTOXIFYLLINE [Concomitant]
  23. GLOBIRON SYRUP (FERRIC AMMONIUM CITRATE, FOLIC ACID, HEMOGLOBIN) [Concomitant]
  24. MILDRONAT [Concomitant]

REACTIONS (3)
  - CEREBROVASCULAR ACCIDENT [None]
  - ENCEPHALOPATHY [None]
  - SINUSITIS [None]
